FAERS Safety Report 7285660-2 (Version None)
Quarter: 2011Q1

REPORT INFORMATION
  Report Type: 
  Country: None (occurrence: None)
  Receive Date: 20110210
  Receipt Date: 20110209
  Transmission Date: 20110831
  Serious: Yes (Other)
  Sender: FDA-Public Use
  Company Number: A0912696A

PATIENT
  Age: 63 Year
  Sex: Male

DRUGS (2)
  1. UNKNOWN [Concomitant]
  2. REQUIP [Suspect]
     Indication: RESTLESS LEGS SYNDROME
     Dosage: 2MG AT NIGHT
     Route: 048
     Dates: start: 20100813

REACTIONS (4)
  - HYPOAESTHESIA [None]
  - AGGRESSION [None]
  - MOOD SWINGS [None]
  - COMPULSIVE SHOPPING [None]
